FAERS Safety Report 25569664 (Version 1)
Quarter: 2025Q3

REPORT INFORMATION
  Report Type: Spontaneous
  Country: EU (occurrence: EU)
  Receive Date: 20250717
  Receipt Date: 20250717
  Transmission Date: 20251021
  Serious: Yes (Death, Other)
  Sender: CELLTRION
  Company Number: None

PATIENT

DRUGS (9)
  1. BEVACIZUMAB [Suspect]
     Active Substance: BEVACIZUMAB
     Indication: Hepatocellular carcinoma
     Route: 042
     Dates: start: 20240515, end: 20241011
  2. TECENTRIQ [Suspect]
     Active Substance: ATEZOLIZUMAB
     Indication: Hepatocellular carcinoma
     Route: 042
     Dates: start: 20240515, end: 20241011
  3. PREDNISOLONE [Suspect]
     Active Substance: PREDNISOLONE
     Indication: Myositis
     Route: 048
     Dates: start: 20241108, end: 20241212
  4. ELIQUIS [Concomitant]
     Active Substance: APIXABAN
  5. BISOPROLOL [Concomitant]
     Active Substance: BISOPROLOL
  6. METFORMIN HYDROCHLORIDE [Concomitant]
     Active Substance: METFORMIN HYDROCHLORIDE
  7. BRINZOLAMIDE [Concomitant]
     Active Substance: BRINZOLAMIDE
  8. ZOPICLONE [Concomitant]
     Active Substance: ZOPICLONE
  9. FOLIC ACID [Concomitant]
     Active Substance: FOLIC ACID

REACTIONS (3)
  - Endocarditis staphylococcal [Fatal]
  - Multiple organ dysfunction syndrome [Fatal]
  - Intentional product use issue [Unknown]

NARRATIVE: CASE EVENT DATE: 20241021
